FAERS Safety Report 7900856-1 (Version None)
Quarter: 2011Q4

REPORT INFORMATION
  Report Type: 
  Country: None (occurrence: None)
  Receive Date: 20111108
  Receipt Date: 20111108
  Transmission Date: 20120403
  Serious: Yes (Other)
  Sender: FDA-Public Use
  Company Number: None

PATIENT
  Age: 52 Year
  Sex: Female
  Weight: 74.842 kg

DRUGS (1)
  1. CIPROFLOXACIN HCL [Suspect]
     Indication: BRONCHITIS
     Dosage: ONE TABLET
     Route: 048
     Dates: start: 20111007, end: 20111011

REACTIONS (2)
  - PARAESTHESIA [None]
  - HYPOAESTHESIA [None]
